FAERS Safety Report 20203063 (Version 2)
Quarter: 2022Q1

REPORT INFORMATION
  Report Type: Report from Study
  Country: TH (occurrence: TH)
  Receive Date: 20211218
  Receipt Date: 20220223
  Transmission Date: 20220423
  Serious: Yes (Hospitalization)
  Sender: FDA-Public Use
  Company Number: TH-NOVARTISPH-NVSC2021TH282571

PATIENT
  Sex: Male

DRUGS (3)
  1. ENTRESTO [Suspect]
     Active Substance: SACUBITRIL\VALSARTAN
     Indication: Cardiac failure
     Dosage: 200 MG, BID (QUATER OF TABLET AFTER BREAKFAST AND DINNER)
     Route: 048
  2. ENTRESTO [Suspect]
     Active Substance: SACUBITRIL\VALSARTAN
     Dosage: UNK
     Route: 048
  3. EDOXABAN TOSYLATE [Concomitant]
     Active Substance: EDOXABAN TOSYLATE
     Indication: Product used for unknown indication
     Dosage: 60 MG, UNKNOWN (HALF A TABLET)
     Route: 065

REACTIONS (9)
  - Cardiomegaly [Unknown]
  - Arrhythmia [Unknown]
  - Cerebral thrombosis [Unknown]
  - Hemiparesis [Unknown]
  - Dyskinesia [Unknown]
  - Dysarthria [Unknown]
  - Paralysis [Unknown]
  - Bradycardia [Unknown]
  - Wrong technique in product usage process [Unknown]
